FAERS Safety Report 4360946-X (Version None)
Quarter: 2004Q2

REPORT INFORMATION
  Report Type: 
  Country: None (occurrence: None)
  Receive Date: 20040517
  Receipt Date: 20040503
  Transmission Date: 20050107
  Serious: Yes (Hospitalization, Other)
  Sender: FDA-Public Use
  Company Number: 2004020017

PATIENT
  Age: 0 Day
  Sex: Male
  Weight: 3.69 kg

DRUGS (2)
  1. ZOLOFT [Suspect]
     Indication: DEPRESSION
     Dosage: 150 MG (1 IN 1 D), ORAL
     Route: 048
     Dates: start: 20030101, end: 20040313
  2. RISPERDAL [Suspect]
     Indication: DEPRESSION
     Dosage: 0.25 MEQ (1 IN 1 D), ORAL
     Route: 048
     Dates: end: 20040313

REACTIONS (6)
  - DRUG EXPOSURE DURING PREGNANCY [None]
  - DRUG WITHDRAWAL SYNDROME NEONATAL [None]
  - HYPERVENTILATION [None]
  - LARYNGOMALACIA [None]
  - NEONATAL DISORDER [None]
  - TARDIVE DYSKINESIA [None]
